FAERS Safety Report 12661524 (Version 7)
Quarter: 2016Q4

REPORT INFORMATION
  Report Type: Spontaneous
  Country: US (occurrence: US)
  Receive Date: 20160817
  Receipt Date: 20161212
  Transmission Date: 20170207
  Serious: No
  Sender: FDA-Public Use
  Company Number: US-PFIZER INC-2016385883

PATIENT
  Age: 60 Year
  Sex: Female

DRUGS (4)
  1. LYRICA [Suspect]
     Active Substance: PREGABALIN
     Dosage: 100 MG, 5 TIMES A DAY
     Route: 048
     Dates: start: 20161011
  2. LYRICA [Suspect]
     Active Substance: PREGABALIN
     Dosage: 100 MG, 6X/D
     Route: 048
     Dates: start: 20161129
  3. TRAMADOL HCL [Concomitant]
     Active Substance: TRAMADOL HYDROCHLORIDE
     Dosage: 50 MG, UNK
  4. LYRICA [Suspect]
     Active Substance: PREGABALIN
     Dosage: 100 MG, 4X/DAY
     Route: 048

REACTIONS (3)
  - Weight increased [Unknown]
  - Intentional underdose [Unknown]
  - Drug effect incomplete [Unknown]
